FAERS Safety Report 19373319 (Version 1)
Quarter: 2021Q2

REPORT INFORMATION
  Report Type: Report from Study
  Country: FR (occurrence: FR)
  Receive Date: 20210603
  Receipt Date: 20210603
  Transmission Date: 20210717
  Serious: Yes (Death)
  Sender: FDA-Public Use
  Company Number: FR-MYLANLABS-2021M1031929

PATIENT

DRUGS (4)
  1. CISPLATIN. [Suspect]
     Active Substance: CISPLATIN
     Indication: SQUAMOUS CELL CARCINOMA OF HEAD AND NECK
     Dosage: 100 MILLIGRAM/SQ. METER, CYCLEAS A 1H INFUSION ON DAY 1
     Route: 042
  2. FLUOROURACIL. [Suspect]
     Active Substance: FLUOROURACIL
     Indication: SQUAMOUS CELL CARCINOMA OF HEAD AND NECK
     Dosage: 4000 MILLIGRAM/SQ. METER, CYCLEAS A 96H CONTINUOUS INFUSION ON DAY 1?4
     Route: 042
  3. CETUXIMAB. [Suspect]
     Active Substance: CETUXIMAB
     Dosage: 250 MILLIGRAM/SQ. METER, CYCLEINFUSION AT 10 MG/MINUT..
     Route: 042
  4. CETUXIMAB. [Suspect]
     Active Substance: CETUXIMAB
     Indication: SQUAMOUS CELL CARCINOMA OF HEAD AND NECK
     Dosage: 400 MILLIGRAM/SQ. METER, CYCLEINFUSION AT 5 MG/MINUTE MAXIMUM SPEED ON DAY 1 OF CYCLE 1
     Route: 042

REACTIONS (1)
  - Cardiac arrest [Fatal]
